FAERS Safety Report 6569258-7 (Version None)
Quarter: 2010Q1

REPORT INFORMATION
  Report Type: 
  Country: None (occurrence: None)
  Receive Date: 20100201
  Receipt Date: 20100201
  Transmission Date: 20100710
  Serious: Yes (Disabling, Other)
  Sender: FDA-Public Use
  Company Number: None

PATIENT
  Sex: Male
  Weight: 68.0396 kg

DRUGS (1)
  1. MARIJUANA TBD HERB MEDICAL CENTER, 12509 OXNARD ST. N.HOLLYW [Suspect]
     Dosage: UNKNOWN WEEKLY INHALATION 054
     Route: 055
     Dates: start: 20090721

REACTIONS (3)
  - CONDITION AGGRAVATED [None]
  - DRUG TOXICITY [None]
  - SCHIZOPHRENIA [None]
